FAERS Safety Report 7032592-0 (Version None)
Quarter: 2010Q4

REPORT INFORMATION
  Report Type: 
  Country: None (occurrence: None)
  Receive Date: 20101007
  Receipt Date: 20100927
  Transmission Date: 20110411
  Serious: Yes (Hospitalization)
  Sender: FDA-Public Use
  Company Number: JP-ROCHE-715214

PATIENT
  Sex: Female
  Weight: 50 kg

DRUGS (14)
  1. TOCILIZUMAB [Suspect]
     Indication: RHEUMATOID ARTHRITIS
     Route: 041
     Dates: start: 20090706, end: 20090706
  2. TOCILIZUMAB [Suspect]
     Route: 041
     Dates: start: 20090803, end: 20090803
  3. TOCILIZUMAB [Suspect]
     Route: 041
     Dates: start: 20090831, end: 20090831
  4. TOCILIZUMAB [Suspect]
     Route: 041
     Dates: start: 20090928, end: 20090928
  5. TOCILIZUMAB [Suspect]
     Route: 041
     Dates: start: 20091026, end: 20091026
  6. TOCILIZUMAB [Suspect]
     Route: 041
     Dates: start: 20091120, end: 20091120
  7. TOCILIZUMAB [Suspect]
     Route: 041
     Dates: start: 20100115
  8. RHEUMATREX [Concomitant]
     Route: 048
  9. PREDNISOLONE [Concomitant]
     Route: 048
  10. ALFAROL [Concomitant]
     Dosage: NAME RPTD AS ^ALFAROL CAPSULE^
     Route: 048
  11. GLAKAY [Concomitant]
     Route: 048
  12. LOXONIN [Concomitant]
     Route: 048
  13. TAKEPRON [Concomitant]
     Route: 048
  14. ISCOTIN [Concomitant]
     Dosage: FORM:PERORAL AGENT

REACTIONS (2)
  - HYPERCHOLESTEROLAEMIA [None]
  - ILEUS [None]
